FAERS Safety Report 10724276 (Version 4)
Quarter: 2015Q2

REPORT INFORMATION
  Report Type: Spontaneous
  Country: US (occurrence: US)
  Receive Date: 20150120
  Receipt Date: 20150610
  Transmission Date: 20150821
  Serious: Yes (Hospitalization, Other)
  Sender: FDA-Public Use
  Company Number: US-BAYER-2015-005304

PATIENT
  Age: 35 Year
  Sex: Female
  Weight: 70.3 kg

DRUGS (5)
  1. MIRENA [Suspect]
     Active Substance: LEVONORGESTREL
     Indication: MENORRHAGIA
  2. MIRENA [Suspect]
     Active Substance: LEVONORGESTREL
     Indication: CONTRACEPTION
     Dosage: 20 MCG/24HR, CONT
     Route: 015
     Dates: start: 20090410, end: 20121214
  3. SYNTHROID [Concomitant]
     Active Substance: LEVOTHYROXINE SODIUM
     Indication: THYROID DISORDER
     Dosage: UNK
     Dates: start: 1996
  4. WELLBUTRIN [Concomitant]
     Active Substance: BUPROPION HYDROCHLORIDE
     Indication: DEPRESSION
     Dosage: UNK
  5. WELLBUTRIN [Concomitant]
     Active Substance: BUPROPION HYDROCHLORIDE
     Indication: ANXIETY

REACTIONS (14)
  - Emotional distress [None]
  - Genital haemorrhage [None]
  - Injury [None]
  - Dyspareunia [None]
  - Device difficult to use [None]
  - Procedural pain [None]
  - Abdominal pain lower [None]
  - Depression [None]
  - Anxiety [None]
  - Procedural pain [None]
  - Procedural pain [None]
  - Procedural pain [None]
  - Medical device discomfort [None]
  - Embedded device [None]

NARRATIVE: CASE EVENT DATE: 2009
